FAERS Safety Report 13020472 (Version 16)
Quarter: 2019Q2

REPORT INFORMATION
  Report Type: Report from Study
  Country: US (occurrence: US)
  Receive Date: 20161212
  Receipt Date: 20190514
  Transmission Date: 20190711
  Serious: Yes (Hospitalization)
  Sender: FDA-Public Use
  Company Number: US-ACTELION-A-NJ2016-146613

PATIENT
  Age: 53 Year
  Sex: Female
  Weight: 59.41 kg

DRUGS (14)
  1. VELETRI [Suspect]
     Active Substance: EPOPROSTENOL
     Indication: PULMONARY HYPERTENSION
     Dosage: 40 NG/KG, PER MIN
     Route: 042
  2. VELETRI [Suspect]
     Active Substance: EPOPROSTENOL
     Dosage: 16.75 NG/KG, PER MIN
     Route: 042
  3. VELETRI [Suspect]
     Active Substance: EPOPROSTENOL
     Dosage: 21.2 NG/KG, PER MIN
     Route: 042
  4. PREDNISONE. [Suspect]
     Active Substance: PREDNISONE
     Indication: PRODUCT USED FOR UNKNOWN INDICATION
     Route: 065
  5. TORSEMIDE. [Concomitant]
     Active Substance: TORSEMIDE
     Dosage: UNK
  6. MYCOPHENOLATE [Suspect]
     Active Substance: MYCOPHENOLIC ACID
     Indication: PRODUCT USED FOR UNKNOWN INDICATION
     Route: 065
  7. VELETRI [Suspect]
     Active Substance: EPOPROSTENOL
     Dosage: 12.1 NG/KG, PER MIN
     Route: 042
     Dates: start: 20151014
  8. OPSUMIT [Suspect]
     Active Substance: MACITENTAN
     Dosage: UNK
     Route: 048
  9. SILDENAFIL CITRATE. [Concomitant]
     Active Substance: SILDENAFIL CITRATE
     Dosage: 10 MG, TID
     Dates: start: 201607
  10. SILDENAFIL CITRATE. [Concomitant]
     Active Substance: SILDENAFIL CITRATE
     Dosage: 12.5 MG, TID
  11. ALBUTEROL. [Concomitant]
     Active Substance: ALBUTEROL
  12. ASPIRIN. [Concomitant]
     Active Substance: ASPIRIN
  13. OPSUMIT [Suspect]
     Active Substance: MACITENTAN
     Indication: PULMONARY HYPERTENSION
     Dosage: 10 MG, QD
     Route: 048
     Dates: start: 201505
  14. ALDACTONE [Concomitant]
     Active Substance: SPIRONOLACTONE
     Dosage: UNK

REACTIONS (35)
  - Cardiac failure congestive [Unknown]
  - Device issue [Unknown]
  - Catheter site infection [Unknown]
  - Hyperhidrosis [Unknown]
  - Migraine [Unknown]
  - Decreased appetite [Recovering/Resolving]
  - Fluid retention [Unknown]
  - Fatigue [Unknown]
  - Feeling hot [Unknown]
  - Erythema [Unknown]
  - Abdominal distension [Recovering/Resolving]
  - Oxygen saturation decreased [Recovering/Resolving]
  - Discomfort [Recovering/Resolving]
  - Catheter site pain [Unknown]
  - Dyspnoea [Recovering/Resolving]
  - Device dislocation [Unknown]
  - Catheter placement [Unknown]
  - Back pain [Unknown]
  - Cellulitis [Unknown]
  - Pulmonary oedema [Recovering/Resolving]
  - Catheter site inflammation [Unknown]
  - Flushing [Unknown]
  - Catheter management [Unknown]
  - Catheter site discharge [Unknown]
  - Hypotension [Unknown]
  - Heart rate increased [Unknown]
  - Catheter site injury [Unknown]
  - Hernia [Unknown]
  - Device alarm issue [Unknown]
  - Medication error [Unknown]
  - Malaise [Recovering/Resolving]
  - Palpitations [Recovered/Resolved]
  - Abdominal discomfort [Unknown]
  - Nausea [Unknown]
  - Pain in jaw [Unknown]

NARRATIVE: CASE EVENT DATE: 20161211
